FAERS Safety Report 6024136-7 (Version None)
Quarter: 2008Q4

REPORT INFORMATION
  Report Type: 
  Country: None (occurrence: None)
  Receive Date: 20081224
  Receipt Date: 20081212
  Transmission Date: 20090506
  Serious: Yes (Death)
  Sender: FDA-Public Use
  Company Number: KV200800872

PATIENT
  Age: 73 Year
  Sex: Male

DRUGS (4)
  1. MORPHINE SULFATE [Suspect]
     Indication: PAIN
     Dosage: 30 MG, BID, ORAL
     Route: 048
     Dates: start: 20060101
  2. MORPHINE SULFATE [Suspect]
     Indication: PAIN
     Dosage: 15 MG, PRN, ORAL
     Route: 048
     Dates: start: 20060101
  3. DRUG USED IN DIABETES [Concomitant]
  4. THYROID THERAPY [Concomitant]

REACTIONS (2)
  - HYPERVENTILATION [None]
  - PRODUCT QUALITY ISSUE [None]
